FAERS Safety Report 7243322-1 (Version None)
Quarter: 2011Q1

REPORT INFORMATION
  Report Type: 
  Country: None (occurrence: None)
  Receive Date: 20110118
  Receipt Date: 20110112
  Transmission Date: 20110831
  Serious: Yes (Hospitalization)
  Sender: FDA-Public Use
  Company Number: WAES 1101USA01152

PATIENT
  Age: 53 Year
  Sex: Male

DRUGS (5)
  1. DEXAMETHASONE [Suspect]
     Indication: MULTIPLE MYELOMA
     Dosage: 28 MG/DAILY/PO
     Route: 048
     Dates: start: 20101012
  2. TARKA [Concomitant]
  3. CHLORTHIALIDONE [Concomitant]
  4. LENALIDOMIDE [Suspect]
     Indication: MULTIPLE MYELOMA
     Dosage: 25 MG/DAILY/PO
     Route: 048
     Dates: start: 20101012
  5. TAB ELOTUZIMAB UNK [Suspect]
     Indication: MULTIPLE MYELOMA
     Dosage: 10 MG/DAILY/IV
     Route: 042
     Dates: start: 20101010

REACTIONS (10)
  - STREPTOCOCCUS TEST POSITIVE [None]
  - SINUS TACHYCARDIA [None]
  - MULTIPLE MYELOMA [None]
  - BLOOD UREA INCREASED [None]
  - LEUKOCYTOSIS [None]
  - HEADACHE [None]
  - ATRIOVENTRICULAR BLOCK FIRST DEGREE [None]
  - SEPSIS [None]
  - HAEMOGLOBIN DECREASED [None]
  - NEOPLASM MALIGNANT [None]
